FAERS Safety Report 6727610-0 (Version None)
Quarter: 2010Q2

REPORT INFORMATION
  Report Type: 
  Country: None (occurrence: None)
  Receive Date: 20100517
  Receipt Date: 20100517
  Transmission Date: 20101027
  Serious: Yes (Hospitalization, Other)
  Sender: FDA-Public Use
  Company Number: None

PATIENT
  Age: 12 Month
  Sex: Female
  Weight: 9.0719 kg

DRUGS (5)
  1. TYLENOL INFANTS DROPS 80MG MCNEIL [Suspect]
     Indication: PYREXIA
     Dosage: 0.8 4-6 HOURS PRN PO
     Route: 048
     Dates: start: 20100422, end: 20100430
  2. TYLENOL INFANTS DROPS 80MG MCNEIL [Suspect]
     Indication: TEETHING
     Dosage: 0.8 4-6 HOURS PRN PO
     Route: 048
     Dates: start: 20100422, end: 20100430
  3. TYLENOL INFANTS DROPS 80MG MCNEIL [Suspect]
  4. MOTRIN INFANTS 50 MG MCNEIL [Suspect]
     Dosage: 0.8. 4-6 HOURS PRN PO
     Route: 048
     Dates: start: 20100422, end: 20100430
  5. MOTRIN INFANTS DROPS 50MG MCNEIL [Suspect]

REACTIONS (6)
  - DRUG INEFFECTIVE [None]
  - EAR INFECTION [None]
  - GRAND MAL CONVULSION [None]
  - MALAISE [None]
  - PHARYNGITIS [None]
  - PRODUCT QUALITY ISSUE [None]
